FAERS Safety Report 13088443 (Version 2)
Quarter: 2017Q1

REPORT INFORMATION
  Report Type: Spontaneous
  Country: DK (occurrence: DK)
  Receive Date: 20170105
  Receipt Date: 20170130
  Transmission Date: 20170428
  Serious: Yes (Hospitalization, Other)
  Sender: FDA-Public Use
  Company Number: DK-APOPHARMA USA, INC.-2017AP005049

PATIENT
  Age: 51 Year
  Sex: Male

DRUGS (4)
  1. BISMUTH. [Concomitant]
     Active Substance: BISMUTH
     Indication: PROPHYLACTIC CHEMOTHERAPY
     Dosage: 1000 MG, BID
     Route: 048
  2. ALKERAN [Suspect]
     Active Substance: MELPHALAN
     Indication: STEM CELL TRANSPLANT
  3. ALKERAN [Suspect]
     Active Substance: MELPHALAN
     Indication: PLASMA CELL MYELOMA
     Route: 065
  4. BISMUTH. [Concomitant]
     Active Substance: BISMUTH
     Dosage: 500 MG, BID
     Route: 048

REACTIONS (4)
  - Stomatitis [Recovered/Resolved]
  - Diarrhoea [Recovered/Resolved]
  - Infection [Recovered/Resolved]
  - Cytopenia [Unknown]
